FAERS Safety Report 5898264-0 (Version None)
Quarter: 2008Q3

REPORT INFORMATION
  Report Type: 
  Country: None (occurrence: None)
  Receive Date: 20080925
  Receipt Date: 20070809
  Transmission Date: 20090109
  Serious: No
  Sender: FDA-Public Use
  Company Number: A0669198A

PATIENT
  Age: 74 Year
  Sex: Male

DRUGS (3)
  1. WELLBUTRIN XL [Suspect]
     Indication: DEPRESSION
     Dosage: 150MG PER DAY
     Route: 048
     Dates: start: 20070808
  2. COUMADIN [Concomitant]
  3. METFORMIN HCL [Concomitant]

REACTIONS (5)
  - ASTHENIA [None]
  - BURNING SENSATION [None]
  - DIARRHOEA [None]
  - DYSPEPSIA [None]
  - MUSCLE SPASMS [None]
